FAERS Safety Report 5238897-8 (Version None)
Quarter: 2007Q1

REPORT INFORMATION
  Report Type: 
  Country: None (occurrence: None)
  Receive Date: 20070215
  Receipt Date: 20070207
  Transmission Date: 20070707
  Serious: Yes (Other)
  Sender: FDA-Public Use
  Company Number: US-PFIZER INC-2007010616

PATIENT
  Sex: Male
  Weight: 79.4 kg

DRUGS (3)
  1. CHANTIX [Suspect]
     Indication: EX-SMOKER
     Dates: start: 20070101
  2. LIPITOR [Concomitant]
     Dosage: TEXT:80MG-FREQ:DAILY
  3. ZETIA [Concomitant]

REACTIONS (1)
  - COLOUR BLINDNESS [None]
